FAERS Safety Report 19934813 (Version 3)
Quarter: 2021Q4

REPORT INFORMATION
  Report Type: Spontaneous
  Country: GB (occurrence: GB)
  Receive Date: 20211008
  Receipt Date: 20211029
  Transmission Date: 20220303
  Serious: Yes (Hospitalization, Other)
  Sender: FDA-Public Use
  Company Number: None

PATIENT
  Sex: Female
  Weight: 73 kg

DRUGS (17)
  1. LANSOPRAZOLE [Suspect]
     Active Substance: LANSOPRAZOLE
     Indication: Prophylaxis
     Dosage: 15 MG, 1X/DAY (QD)
     Route: 048
  2. PREGABALIN [Suspect]
     Active Substance: PREGABALIN
     Indication: Anxiety
     Dosage: 100 MG, 2X/DAY
     Route: 048
  3. BISOPROLOL FUMARATE [Suspect]
     Active Substance: BISOPROLOL FUMARATE
     Indication: Hypertension
     Dosage: 2.5 MG, 1X/DAY (QD)
     Route: 048
  4. CHOLECALCIFEROL [Suspect]
     Active Substance: CHOLECALCIFEROL
     Indication: Vitamin D abnormal
     Dosage: 800U
     Route: 048
  5. CLOZARIL [Suspect]
     Active Substance: CLOZAPINE
     Indication: Schizophrenia
     Dosage: 75 MG, 2X/DAY (BID)
     Route: 048
     Dates: start: 20141128
  6. MINERAL OIL\PETROLATUM\WAX, EMULSIFYING [Suspect]
     Active Substance: MINERAL OIL\PETROLATUM\WAX, EMULSIFYING
     Indication: Eczema
     Dosage: UNK
     Route: 061
  7. ISOSORBIDE MONONITRATE [Suspect]
     Active Substance: ISOSORBIDE MONONITRATE
     Indication: Diabetes mellitus
     Dosage: UNK
     Route: 048
  8. LEVOTHYROXINE SODIUM [Suspect]
     Active Substance: LEVOTHYROXINE SODIUM
     Indication: Hypothyroidism
     Dosage: UNK
     Route: 048
  9. MEBEVERINE [Suspect]
     Active Substance: MEBEVERINE
     Indication: Prophylaxis
     Dosage: 135 MG, 1X/DAY (QD)
     Route: 048
  10. MEMANTINE [Suspect]
     Active Substance: MEMANTINE
     Indication: Dementia Alzheimer^s type
     Dosage: 20 MG, 1X/DAY (QD)
     Route: 048
     Dates: start: 202106
  11. MEMANTINE [Suspect]
     Active Substance: MEMANTINE
     Dosage: UNK
  12. MIRABEGRON [Suspect]
     Active Substance: MIRABEGRON
     Indication: Hypertonic bladder
     Dosage: 50 MG, 1X/DAY (QD)
     Route: 048
  13. MIRABEGRON [Suspect]
     Active Substance: MIRABEGRON
     Dosage: UNK
  14. SENNA LEAF [Suspect]
     Active Substance: SENNA LEAF
     Indication: Constipation
     Dosage: 7.5 MG, 1X/DAY (QD)
     Route: 048
  15. HYALURONATE SODIUM\TREHALOSE [Suspect]
     Active Substance: HYALURONATE SODIUM\TREHALOSE
     Indication: Dry eye
     Dosage: BOTH EYES, 3X/DAY
     Route: 061
  16. VENTOLIN [Suspect]
     Active Substance: ALBUTEROL SULFATE
     Indication: Asthma
     Dosage: UNK, AS NEEDED (PRN)
  17. MINERAL OIL [Suspect]
     Active Substance: MINERAL OIL
     Indication: Eczema
     Dosage: UNK
     Route: 061

REACTIONS (19)
  - Lung neoplasm malignant [Not Recovered/Not Resolved]
  - Chest pain [Unknown]
  - Pleural effusion [Not Recovered/Not Resolved]
  - Hypothyroidism [Unknown]
  - Cellulitis [Unknown]
  - Dementia Alzheimer^s type [Unknown]
  - Angina pectoris [Unknown]
  - Delirium [Unknown]
  - Vitamin D deficiency [Unknown]
  - Dermatitis atopic [Unknown]
  - Anxiety disorder [Unknown]
  - Chronic obstructive pulmonary disease [Unknown]
  - Rash [Unknown]
  - Urinary tract infection [Unknown]
  - Dyspepsia [Unknown]
  - Gastrointestinal disorder [Unknown]
  - Iron deficiency anaemia [Unknown]
  - Haemorrhoids [Unknown]
  - Schizophrenia [Unknown]

NARRATIVE: CASE EVENT DATE: 20151125
